FAERS Safety Report 7792520-7 (Version None)
Quarter: 2011Q3

REPORT INFORMATION
  Report Type: 
  Country: None (occurrence: None)
  Receive Date: 20110930
  Receipt Date: 20110930
  Transmission Date: 20111222
  Serious: Yes (Life-Threatening, Disabling, Other)
  Sender: FDA-Public Use
  Company Number: None

PATIENT
  Sex: Male
  Weight: 78.0187 kg

DRUGS (1)
  1. VYVANSE [Suspect]
     Indication: DISTURBANCE IN ATTENTION
     Dosage: 60 MG 1 TABLET MORNING
     Dates: start: 20110816

REACTIONS (3)
  - HEART RATE IRREGULAR [None]
  - CHEST PAIN [None]
  - MALAISE [None]
